FAERS Safety Report 11515871 (Version 1)
Quarter: 2015Q3

REPORT INFORMATION
  Report Type: Spontaneous
  Country: US (occurrence: US)
  Receive Date: 20150916
  Receipt Date: 20150916
  Transmission Date: 20151125
  Serious: Yes (Death, Other)
  Sender: FDA-Public Use
  Company Number: US-TAKEDA-2013TUS001330

PATIENT

DRUGS (7)
  1. NOVOLIN [Concomitant]
     Active Substance: INSULIN HUMAN
     Dosage: DURATION: TEN YEARS
  2. AMARYL [Concomitant]
     Active Substance: GLIMEPIRIDE
     Dosage: 2 MG, UNK
     Dates: start: 2010, end: 2011
  3. ACTOS [Suspect]
     Active Substance: PIOGLITAZONE HYDROCHLORIDE
     Indication: TYPE 2 DIABETES MELLITUS
     Dosage: 30-45 MG, UNK
     Dates: start: 2004, end: 2009
  4. METFORMIN [Concomitant]
     Active Substance: METFORMIN HYDROCHLORIDE
     Dosage: UNK
     Dates: start: 2004, end: 2010
  5. GLUCOTROL [Concomitant]
     Active Substance: GLIPIZIDE
  6. ACTOS [Suspect]
     Active Substance: PIOGLITAZONE HYDROCHLORIDE
     Dosage: 30 MG-45 MG, UNK
     Dates: start: 2009
  7. GLUCOPHAGE [Concomitant]
     Active Substance: METFORMIN HYDROCHLORIDE

REACTIONS (3)
  - Bone cancer [Fatal]
  - Bladder cancer [Fatal]
  - Prostate cancer [Fatal]

NARRATIVE: CASE EVENT DATE: 200812
